FAERS Safety Report 8448933-3 (Version None)
Quarter: 2012Q2

REPORT INFORMATION
  Report Type: 
  Country: None (occurrence: None)
  Receive Date: 20120619
  Receipt Date: 20120612
  Transmission Date: 20120825
  Serious: Yes (Other)
  Sender: FDA-Public Use
  Company Number: JP-GLAXOSMITHKLINE-B0808413A

PATIENT
  Age: 34 Year
  Sex: Female

DRUGS (3)
  1. LAMICTAL [Suspect]
     Indication: DEPRESSION
     Dosage: 12.5MG PER DAY
     Route: 048
     Dates: start: 20120518, end: 20120601
  2. VALPROATE SODIUM [Concomitant]
     Dosage: 200MG PER DAY
     Route: 048
     Dates: start: 20120518
  3. VALPROATE SODIUM [Concomitant]
     Indication: DEPRESSION
     Dosage: 400MG PER DAY
     Route: 048
     Dates: end: 20120517

REACTIONS (6)
  - RASH [None]
  - OROPHARYNGEAL PAIN [None]
  - DRUG RASH WITH EOSINOPHILIA AND SYSTEMIC SYMPTOMS [None]
  - PYREXIA [None]
  - NAUSEA [None]
  - DECREASED APPETITE [None]
